FAERS Safety Report 21481644 (Version 1)
Quarter: 2022Q4

REPORT INFORMATION
  Report Type: Spontaneous
  Country: CN (occurrence: CN)
  Receive Date: 20221020
  Receipt Date: 20221020
  Transmission Date: 20230112
  Serious: Yes (Other)
  Sender: FDA-Public Use
  Company Number: None

PATIENT
  Age: 36 Year
  Sex: Female
  Weight: 60 kg

DRUGS (6)
  1. CYCLOPHOSPHAMIDE [Suspect]
     Active Substance: CYCLOPHOSPHAMIDE
     Indication: Breast cancer female
     Dosage: 0.80 G, QD, DILUTED WITH 0.9% SODIUM CHLORIDE 500 ML, IVGTT, START TIME: 10:00
     Route: 041
     Dates: start: 20220925, end: 20220925
  2. CYCLOPHOSPHAMIDE [Suspect]
     Active Substance: CYCLOPHOSPHAMIDE
     Indication: Neoplasm
  3. SODIUM CHLORIDE [Suspect]
     Active Substance: SODIUM CHLORIDE
     Indication: Medication dilution
     Dosage: 500 ML, QD, DILUTED WITH 0.8G CYCLOPHOSPHAMIDE, IVGTT, START TIME: 10:00
     Route: 041
     Dates: start: 20220925, end: 20220925
  4. SODIUM CHLORIDE [Suspect]
     Active Substance: SODIUM CHLORIDE
     Dosage: 100 ML, QD, DILUTED WITH 90 MG EPIRUBICIN HYDROCHLORIDE, IVGTT, START TIME: 10:00
     Route: 041
     Dates: start: 20220925, end: 20220925
  5. EPIRUBICIN HYDROCHLORIDE [Suspect]
     Active Substance: EPIRUBICIN HYDROCHLORIDE
     Indication: Breast cancer female
     Dosage: 90 MG, QD, DILUTED WITH 0.9% SODIUM CHLORIDE 100 ML, IVGTT, START TIME: 10:00
     Route: 041
     Dates: start: 20220925, end: 20220925
  6. EPIRUBICIN HYDROCHLORIDE [Suspect]
     Active Substance: EPIRUBICIN HYDROCHLORIDE
     Indication: Neoplasm

REACTIONS (1)
  - White blood cell count decreased [Recovering/Resolving]

NARRATIVE: CASE EVENT DATE: 20220925
